APPROVED DRUG PRODUCT: AMBENYL
Active Ingredient: BROMODIPHENHYDRAMINE HYDROCHLORIDE; CODEINE PHOSPHATE
Strength: 12.5MG/5ML;10MG/5ML
Dosage Form/Route: SYRUP;ORAL
Application: N009319 | Product #006
Applicant: FOREST LABORATORIES INC
Approved: Jan 10, 1984 | RLD: No | RS: No | Type: DISCN